FAERS Safety Report 19139509 (Version 1)
Quarter: 2021Q2

REPORT INFORMATION
  Report Type: Spontaneous
  Country: NL (occurrence: NL)
  Receive Date: 20210415
  Receipt Date: 20210415
  Transmission Date: 20210717
  Serious: Yes (Hospitalization)
  Sender: FDA-Public Use
  Company Number: NL-PFIZER INC-2021370664

PATIENT
  Age: 81 Year
  Sex: Female

DRUGS (4)
  1. HYDROCHLOORTHIAZIDE [Interacting]
     Active Substance: HYDROCHLOROTHIAZIDE
     Indication: HYPERTENSION
     Dates: start: 20131125, end: 20210324
  2. ARTHROTEC [Suspect]
     Active Substance: DICLOFENAC SODIUM\MISOPROSTOL
     Indication: OSTEOARTHRITIS
  3. OMEPRAZOL [Concomitant]
     Active Substance: OMEPRAZOLE
  4. MACROGOL/POTASSIUM CHLORIDE/SACCHARIN SODIUM/SODIUM BICARBONATE/SODIUM CHLORIDE/SODIUM SULFATE ANHYD [Concomitant]

REACTIONS (3)
  - Drug interaction [Unknown]
  - Acute kidney injury [Recovering/Resolving]
  - Hypokalaemia [Recovering/Resolving]

NARRATIVE: CASE EVENT DATE: 20210324
